FAERS Safety Report 18135959 (Version 3)
Quarter: 2020Q4

REPORT INFORMATION
  Report Type: Report from Study
  Country: None (occurrence: BE)
  Receive Date: 20200811
  Receipt Date: 20201221
  Transmission Date: 20210113
  Serious: Yes (Death, Hospitalization)
  Sender: FDA-Public Use
  Company Number: BE-ABBVIE-20K-013-3513252-00

PATIENT
  Age: 77 Year
  Sex: Female
  Weight: 42 kg

DRUGS (2)
  1. DUODOPA [Suspect]
     Active Substance: CARBIDOPA\LEVODOPA
     Indication: PARKINSON^S DISEASE
     Dosage: UNKNOWN DOSAGES
     Route: 050
     Dates: start: 20121112, end: 20130929
  2. DUODOPA [Suspect]
     Active Substance: CARBIDOPA\LEVODOPA
     Dosage: MD=5.4ML, CD=1.9ML/HR DURING 16HRS, ED=1.2ML.
     Route: 050
     Dates: start: 20130929

REACTIONS (1)
  - General physical health deterioration [Fatal]
